FAERS Safety Report 4893602-X (Version None)
Quarter: 2006Q1

REPORT INFORMATION
  Report Type: 
  Country: None (occurrence: None)
  Receive Date: 20060124
  Receipt Date: 20060111
  Transmission Date: 20060701
  Serious: Yes (Life-Threatening, Hospitalization)
  Sender: FDA-Public Use
  Company Number: 2005157417

PATIENT
  Age: 70 Year
  Sex: Male
  Weight: 90 kg

DRUGS (5)
  1. LYRICA [Suspect]
     Indication: HERPES ZOSTER
     Dosage: 100 MG (50 MG, 2 IN 1 D), ORAL
     Route: 048
     Dates: start: 20050901, end: 20050915
  2. LYRICA [Suspect]
     Indication: POST HERPETIC NEURALGIA
     Dosage: 100 MG (50 MG, 2 IN 1 D), ORAL
     Route: 048
     Dates: start: 20050901, end: 20050915
  3. ALLOPURINOL [Concomitant]
  4. PANTOPRAZOLE SODIUM [Concomitant]
  5. COMBIVENT [Concomitant]

REACTIONS (8)
  - CARDIAC ARREST [None]
  - CARDIOVASCULAR DISORDER [None]
  - CONSCIOUSNESS FLUCTUATING [None]
  - DRUG INEFFECTIVE [None]
  - INADEQUATE ANALGESIA [None]
  - MYOCARDIAL ISCHAEMIA [None]
  - SYNCOPE [None]
  - VENTRICULAR TACHYCARDIA [None]
